FAERS Safety Report 10311035 (Version 3)
Quarter: 2018Q4

REPORT INFORMATION
  Report Type: Spontaneous
  Country: US (occurrence: US)
  Receive Date: 20140717
  Receipt Date: 20181217
  Transmission Date: 20190204
  Serious: Yes (Hospitalization, Other)
  Sender: FDA-Public Use
  Company Number: US-PFIZER INC-2014195717

PATIENT
  Sex: Female

DRUGS (1)
  1. CRIZOTINIB [Suspect]
     Active Substance: CRIZOTINIB
     Dosage: UNK

REACTIONS (6)
  - Acute kidney injury [Unknown]
  - Rhabdomyolysis [Unknown]
  - Myopathy [Unknown]
  - Nephrotic syndrome [Recovered/Resolved with Sequelae]
  - Blood creatine phosphokinase increased [Unknown]
  - Generalised oedema [Unknown]
